FAERS Safety Report 6422497-8 (Version None)
Quarter: 2009Q4

REPORT INFORMATION
  Report Type: 
  Country: None (occurrence: None)
  Receive Date: 20091101
  Receipt Date: 20091026
  Transmission Date: 20100525
  Serious: Yes (Other)
  Sender: FDA-Public Use
  Company Number: US-RB-019754-09

PATIENT
  Age: 62 Year
  Sex: Male

DRUGS (1)
  1. SUBOXONE [Suspect]
     Indication: DRUG USE FOR UNKNOWN INDICATION
     Dosage: DOSING INFORMATION UNKNOWN.
     Route: 065

REACTIONS (8)
  - BRAIN NEOPLASM [None]
  - HYPERSOMNIA [None]
  - HYPOAESTHESIA [None]
  - JOINT INJURY [None]
  - MALAISE [None]
  - MUSCLE SPASMS [None]
  - NEOPLASM MALIGNANT [None]
  - PAIN [None]
